FAERS Safety Report 16363511 (Version 1)
Quarter: 2019Q2

REPORT INFORMATION
  Report Type: Spontaneous
  Country: FR (occurrence: FR)
  Receive Date: 20190528
  Receipt Date: 20190528
  Transmission Date: 20190711
  Serious: Yes (Other)
  Sender: FDA-Public Use
  Company Number: FR-MYLANLABS-2019M1048611

PATIENT
  Age: 82 Year
  Sex: Male
  Weight: 79 kg

DRUGS (3)
  1. FLUCONAZOLE. [Suspect]
     Active Substance: FLUCONAZOLE
     Indication: CANDIDA INFECTION
     Dosage: 100 MILLIGRAM, QD
     Route: 048
     Dates: start: 20180630
  2. LOVENOX [Interacting]
     Active Substance: ENOXAPARIN SODIUM
     Indication: ATRIAL FIBRILLATION
     Dosage: 14000 INTERNATIONAL UNIT, QD
     Route: 058
     Dates: start: 20180713, end: 20180715
  3. PREVISCAN                          /00789001/ [Interacting]
     Active Substance: FLUINDIONE
     Indication: ATRIAL FIBRILLATION
     Dosage: CF COMMENTAIRE
     Route: 048
     Dates: end: 20180713

REACTIONS (2)
  - Drug interaction [Unknown]
  - Haematuria [Not Recovered/Not Resolved]

NARRATIVE: CASE EVENT DATE: 20180702
